FAERS Safety Report 5568425-9 (Version None)
Quarter: 2007Q4

REPORT INFORMATION
  Report Type: 
  Country: None (occurrence: None)
  Receive Date: 20071220
  Receipt Date: 20071211
  Transmission Date: 20080405
  Serious: Yes (Hospitalization)
  Sender: FDA-Public Use
  Company Number: FR-AVENTIS-200714002FR

PATIENT
  Age: 85 Year
  Sex: Female

DRUGS (6)
  1. LASIX [Suspect]
     Route: 048
     Dates: end: 20070826
  2. TAREG [Suspect]
     Route: 048
     Dates: end: 20070826
  3. KARDEGIC                           /00002703/ [Concomitant]
  4. TAHOR [Concomitant]
     Route: 048
  5. LEXOMIL [Concomitant]
     Route: 048
  6. CARDENSIEL [Concomitant]
     Route: 048

REACTIONS (5)
  - DRUG INTERACTION [None]
  - FALL [None]
  - HYPERKALAEMIA [None]
  - HYPONATRAEMIA [None]
  - RENAL FAILURE ACUTE [None]
